FAERS Safety Report 23042947 (Version 1)
Quarter: 2023Q4

REPORT INFORMATION
  Report Type: Spontaneous
  Country: US (occurrence: US)
  Receive Date: 20231009
  Receipt Date: 20231009
  Transmission Date: 20240109
  Serious: No
  Sender: FDA-Public Use
  Company Number: US-SA-SAC20231005000189

PATIENT
  Age: 73 Year
  Sex: Female
  Weight: 61.6 kg

DRUGS (9)
  1. DUPIXENT [Suspect]
     Active Substance: DUPILUMAB
     Indication: Dermatitis allergic
     Dosage: 300 MG, QOW
     Route: 058
     Dates: start: 202103
  2. ROSUVASTATIN CALCIUM [Concomitant]
     Active Substance: ROSUVASTATIN CALCIUM
  3. CHILDREN^S FLONASE ALLERGY RELIEF [Concomitant]
  4. BIOTIN [Concomitant]
     Active Substance: BIOTIN
  5. VITAMIN D2 [Concomitant]
     Active Substance: ERGOCALCIFEROL
  6. OMEPRAZOLE [Concomitant]
     Active Substance: OMEPRAZOLE
  7. ESCITALOPRAM OXALATE [Concomitant]
     Active Substance: ESCITALOPRAM OXALATE
  8. CALCIUM CITRATE\CHOLECALCIFEROL [Concomitant]
     Active Substance: CALCIUM CITRATE\CHOLECALCIFEROL
  9. VANICREAM [Concomitant]
     Active Substance: TITANIUM DIOXIDE\ZINC OXIDE

REACTIONS (3)
  - Eyelid skin dryness [Unknown]
  - Angular cheilitis [Recovered/Resolved]
  - Oral herpes [Recovering/Resolving]

NARRATIVE: CASE EVENT DATE: 20210101
